FAERS Safety Report 9239823 (Version 1)
Quarter: 2013Q2

REPORT INFORMATION
  Report Type: Spontaneous
  Country: FR (occurrence: FR)
  Receive Date: 20130418
  Receipt Date: 20130418
  Transmission Date: 20140414
  Serious: Yes (Hospitalization)
  Sender: FDA-Public Use
  Company Number: FR-B.I. PHARMACEUTICALS,INC./RIDGEFIELD-2013-FF-01148FF

PATIENT
  Age: 83 Year
  Sex: Female

DRUGS (2)
  1. PRADAXA [Suspect]
     Indication: ATRIAL FIBRILLATION
     Dosage: 220 MG
     Route: 048
     Dates: start: 20130204, end: 201304
  2. TAHOR [Concomitant]
     Route: 048
     Dates: end: 201304

REACTIONS (1)
  - Gamma-glutamyltransferase increased [Not Recovered/Not Resolved]
